FAERS Safety Report 5987606-3 (Version None)
Quarter: 2008Q4

REPORT INFORMATION
  Report Type: 
  Country: None (occurrence: None)
  Receive Date: 20081209
  Receipt Date: 20081205
  Transmission Date: 20090506
  Serious: Yes (Hospitalization)
  Sender: FDA-Public Use
  Company Number: US-KINGPHARMUSA00001-K200801172

PATIENT

DRUGS (18)
  1. ALTACE [Suspect]
     Indication: HYPERTENSION
     Dosage: 10 MG, QD
     Dates: start: 20060101, end: 20080711
  2. ALTACE [Suspect]
     Dosage: 20 MG, QD
     Dates: start: 20080722
  3. LASIX [Suspect]
     Indication: HYPERTENSION
     Dosage: 160 MG, QD
     Dates: start: 19990101, end: 20080711
  4. IRBESARTAN [Suspect]
     Indication: HYPERTENSION
     Dosage: 150 MG, QD
     Dates: start: 20060101, end: 20080711
  5. ASPIRIN [Concomitant]
     Indication: COAGULOPATHY
     Dosage: 81 MG, QD
     Route: 048
     Dates: start: 19980101
  6. PLAVIX [Concomitant]
     Indication: COAGULOPATHY
     Dosage: 75 MG, QD
     Route: 048
     Dates: start: 19991101
  7. ATORVASTATIN [Concomitant]
     Indication: HYPERCHOLESTEROLAEMIA
     Dosage: 40 MG, QD
     Route: 048
     Dates: start: 19991101
  8. LIPIDIL [Concomitant]
     Indication: HYPERCHOLESTEROLAEMIA
     Dosage: 160 MG, QD
     Route: 048
     Dates: start: 20001201
  9. LISINOPRIL [Concomitant]
     Dosage: 20 MG, QD
     Route: 048
  10. HUMULIN N [Concomitant]
     Indication: DIABETES MELLITUS
     Dosage: 130 U, UNK
     Route: 058
     Dates: start: 19950101
  11. HUMALOG [Concomitant]
     Indication: DIABETES MELLITUS
     Dosage: 124 U, UNK
     Route: 058
     Dates: start: 19950101
  12. ZOLOFT [Concomitant]
     Indication: INSOMNIA
     Dosage: 50 MG, QD
     Route: 048
     Dates: start: 20040101
  13. TRUSOPT [Concomitant]
     Indication: GLAUCOMA
     Dosage: 1 DF, BID
     Route: 047
     Dates: start: 19990101
  14. TIMOLOL [Concomitant]
     Indication: GLAUCOMA
     Dosage: 1 DF, BID
     Route: 047
     Dates: start: 19990101
  15. ALPHAGAN                           /01341101/ [Concomitant]
     Indication: GLAUCOMA
     Dosage: 1 DF, BID
     Route: 047
     Dates: start: 19990101
  16. STUDY DRUG [Concomitant]
     Indication: CARDIOVASCULAR DISORDER
     Dosage: 20 MG, QD
     Route: 048
     Dates: start: 20061218, end: 20080711
  17. CHLORTHALIDONE [Concomitant]
  18. METOPROLOL TARTRATE [Concomitant]
     Dosage: 50 MG, BID
     Dates: start: 19980601

REACTIONS (8)
  - BLOOD CREATININE INCREASED [None]
  - CHRONIC OBSTRUCTIVE PULMONARY DISEASE [None]
  - DECREASED APPETITE [None]
  - DEHYDRATION [None]
  - DYSPNOEA [None]
  - FATIGUE [None]
  - RENAL FAILURE ACUTE [None]
  - WEIGHT DECREASED [None]
